FAERS Safety Report 9120814 (Version 1)
Quarter: 2013Q1

REPORT INFORMATION
  Report Type: Spontaneous
  Country: None (occurrence: US)
  Receive Date: 20130226
  Receipt Date: 20130226
  Transmission Date: 20140127
  Serious: Yes (Hospitalization)
  Sender: FDA-Public Use
  Company Number: US-COVIDIEN/TYCO HEALTHCARE/MALLINCKRODT-T201300886

PATIENT
  Age: 47 Year
  Sex: Male

DRUGS (5)
  1. METHADONE [Suspect]
     Indication: DRUG DEPENDENCE
     Dosage: 10 MG, TID
  2. AZITHROMYCIN [Suspect]
     Indication: UPPER RESPIRATORY TRACT INFECTION
     Dosage: UNK
  3. LISINOPRIL/HYDROCHLOROTHIAZIDE [Concomitant]
     Dosage: 20/12.5 MG ONCE DAILY
  4. BENZONATATE [Concomitant]
     Dosage: 100 MG, PRN
  5. OTHER COLD COMBINATION PREPARATIONS [Concomitant]
     Dosage: UNK

REACTIONS (3)
  - Cardiac arrest [Recovered/Resolved]
  - Electrocardiogram QT prolonged [Unknown]
  - Drug interaction [Recovered/Resolved]
